FAERS Safety Report 8448468-8 (Version None)
Quarter: 2012Q2

REPORT INFORMATION
  Report Type: 
  Country: None (occurrence: None)
  Receive Date: 20120619
  Receipt Date: 20120613
  Transmission Date: 20120825
  Serious: Yes (Disabling, Other)
  Sender: FDA-Public Use
  Company Number: NC-BAYER-2012-025163

PATIENT
  Age: 44 Year
  Sex: Female

DRUGS (1)
  1. MOXIFLOXACIN HCL [Suspect]
     Indication: OROPHARYNGEAL PAIN
     Dosage: 400 UNK, UNK

REACTIONS (4)
  - DYSPNOEA [None]
  - ANAPHYLACTIC SHOCK [None]
  - ANOSMIA [None]
  - URTICARIA [None]
